FAERS Safety Report 9841882 (Version 1)
Quarter: 2014Q1

REPORT INFORMATION
  Report Type: Spontaneous
  Country: US (occurrence: US)
  Receive Date: 20140124
  Receipt Date: 20140124
  Transmission Date: 20141002
  Serious: No
  Sender: FDA-Public Use
  Company Number: US-BAYER-2014-001688

PATIENT
  Age: 57 Year
  Sex: Male
  Weight: 95 kg

DRUGS (2)
  1. ALKA-SELTZER PLUS SPARKLING ORIGINAL COLD FORMULA [Suspect]
     Indication: ABDOMINAL DISCOMFORT
     Dosage: UNK UNK, ONCE
     Route: 048
     Dates: start: 20131231, end: 20131231
  2. ALEVE CAPLET [Suspect]
     Dosage: UNK UNK, PRN

REACTIONS (1)
  - Off label use [None]
